FAERS Safety Report 24349620 (Version 2)
Quarter: 2024Q4

REPORT INFORMATION
  Report Type: Spontaneous
  Country: CN (occurrence: CN)
  Receive Date: 20240923
  Receipt Date: 20241007
  Transmission Date: 20250115
  Serious: Yes (Other)
  Sender: JAZZ
  Company Number: CN-JAZZ-2024-LUYE-002102

PATIENT
  Age: 58 Year
  Sex: Male
  Weight: 59 kg

DRUGS (5)
  1. ZEPZELCA [Suspect]
     Active Substance: LURBINECTEDIN
     Indication: Small cell lung cancer
     Dosage: 5.2 MILLIGRAM,  ONCE EVERY 21 DAYS, D1
     Route: 042
     Dates: start: 20240903, end: 20240903
  2. DEXTROSE [Concomitant]
     Active Substance: DEXTROSE MONOHYDRATE
     Indication: Lung neoplasm malignant
     Dosage: 250 MILLILITER, Q3W
     Route: 042
     Dates: start: 20240903, end: 20240903
  3. ATORVASTATIN CALCIUM [Concomitant]
     Active Substance: ATORVASTATIN CALCIUM
     Indication: Dyslipidaemia
     Dosage: 20 MILLIGRAM, QD
     Route: 048
     Dates: start: 20240830, end: 20240903
  4. PHOSPHOLIPID [Concomitant]
     Active Substance: PHOSPHOLIPID
     Indication: Hepatobiliary disorder prophylaxis
     Dosage: 2 DOSAGE FORM, Q8H
     Route: 048
     Dates: start: 20240830, end: 20240903
  5. ENTECAVIR [Concomitant]
     Active Substance: ENTECAVIR
     Indication: Hepatitis B surface antibody negative
     Dosage: 0.5 MILLIGRAM, QD
     Route: 048
     Dates: start: 20240830, end: 20240903

REACTIONS (1)
  - Drug-induced liver injury [Recovering/Resolving]

NARRATIVE: CASE EVENT DATE: 20240905
